FAERS Safety Report 25065375 (Version 2)
Quarter: 2025Q4

REPORT INFORMATION
  Report Type: Spontaneous
  Country: JP (occurrence: JP)
  Receive Date: 20250311
  Receipt Date: 20251203
  Transmission Date: 20260117
  Serious: Yes (Other)
  Sender: EISAI
  Company Number: JP-Eisai-202411439_LEN-RCC_P_1

PATIENT
  Sex: Male

DRUGS (7)
  1. LENVIMA [Suspect]
     Active Substance: LENVATINIB
     Indication: Metastatic renal cell carcinoma
     Route: 048
     Dates: start: 20240913, end: 20241011
  2. LENVIMA [Suspect]
     Active Substance: LENVATINIB
     Route: 048
     Dates: start: 20241206, end: 20241216
  3. LENVIMA [Suspect]
     Active Substance: LENVATINIB
     Route: 048
     Dates: start: 20241224, end: 20250123
  4. LENVIMA [Suspect]
     Active Substance: LENVATINIB
     Route: 048
     Dates: start: 20250124, end: 20250307
  5. LENVIMA [Suspect]
     Active Substance: LENVATINIB
     Dosage: 5 TIMES PER WEEK, RESUMED ON WEEKENDS-OFF (5-DAY-ON AND 2-DAY-OFF) SCHEDULE.
     Route: 048
  6. KEYTRUDA [Suspect]
     Active Substance: PEMBROLIZUMAB
     Indication: Metastatic renal cell carcinoma
     Dosage: FREQUENCY UNKNOWN
     Route: 042
     Dates: start: 20240913, end: 20241216
  7. KEYTRUDA [Suspect]
     Active Substance: PEMBROLIZUMAB
     Dosage: DOSE AND FREQUENCY UNKNOWN
     Route: 042
     Dates: start: 20241227, end: 20250307

REACTIONS (3)
  - Adrenal insufficiency [Unknown]
  - Arthritis [Unknown]
  - Decreased appetite [Unknown]

NARRATIVE: CASE EVENT DATE: 20241216
